FAERS Safety Report 8518515-3 (Version None)
Quarter: 2012Q3

REPORT INFORMATION
  Report Type: 
  Country: None (occurrence: None)
  Receive Date: 20120718
  Receipt Date: 20120709
  Transmission Date: 20120928
  Serious: Yes (Death, Hospitalization)
  Sender: FDA-Public Use
  Company Number: TR-BRISTOL-MYERS SQUIBB COMPANY-16776940

PATIENT
  Age: 8 Year
  Sex: Female

DRUGS (4)
  1. CARBOPLATIN [Suspect]
     Indication: NEUROBLASTOMA
     Dosage: ON DAY -5 TO -2.
  2. MELPHALAN HYDROCHLORIDE [Suspect]
     Indication: NEUROBLASTOMA
     Dosage: ON DAYS -8 TO -5
  3. ETOPOSIDE [Suspect]
     Indication: NEUROBLASTOMA
     Dosage: NO OF COURSES:6
  4. I-131 MIBG [Suspect]
     Indication: NEUROBLASTOMA
     Dosage: 1 DF - 100MCI(10 MCI/KG) ON DAY 21

REACTIONS (3)
  - HAEMORRHAGE INTRACRANIAL [None]
  - GRAFT VERSUS HOST DISEASE [None]
  - HYPERTENSION [None]
